FAERS Safety Report 8931700 (Version 2)
Quarter: 2013Q1

REPORT INFORMATION
  Report Type: Spontaneous
  Country: US (occurrence: US)
  Receive Date: 20121128
  Receipt Date: 20130104
  Transmission Date: 20140127
  Serious: Yes (Other)
  Sender: FDA-Public Use
  Company Number: US-SHIRE-ALL1-2012-05663

PATIENT
  Age: 9 Year
  Sex: Male
  Weight: 59.86 kg

DRUGS (3)
  1. VYVANSE [Suspect]
     Indication: ATTENTION DEFICIT/HYPERACTIVITY DISORDER
     Dosage: 50 MG, 1X/DAY:QD
     Route: 048
     Dates: start: 20110429, end: 20110429
  2. LITHIUM CARBONATE [Suspect]
     Indication: AGGRESSION
     Dosage: 450 MG, 1X/DAY:QD
     Route: 048
     Dates: start: 20110427
  3. LITHIUM CARBONATE [Suspect]
     Indication: AFFECTIVE DISORDER
     Dosage: 300 MG, 1X/DAY:QD
     Route: 048

REACTIONS (10)
  - Chest pain [Recovered/Resolved]
  - Dyspnoea [Recovered/Resolved]
  - Microcytic anaemia [Recovered/Resolved]
  - Dysphemia [Recovered/Resolved]
  - Akathisia [Recovered/Resolved]
  - Electrocardiogram abnormal [Recovered/Resolved]
  - Dyskinesia [Recovered/Resolved]
  - Blood pressure increased [Recovered/Resolved]
  - Logorrhoea [Recovered/Resolved]
  - Heart rate increased [Recovered/Resolved]
